FAERS Safety Report 8513906-9 (Version None)
Quarter: 2012Q3

REPORT INFORMATION
  Report Type: 
  Country: None (occurrence: None)
  Receive Date: 20120717
  Receipt Date: 20120709
  Transmission Date: 20120928
  Serious: Yes (Hospitalization)
  Sender: FDA-Public Use
  Company Number: US-ASTRAZENECA-2011SE41550

PATIENT
  Age: 53 Year
  Sex: Female

DRUGS (29)
  1. NEXIUM [Suspect]
     Route: 048
     Dates: start: 20040201, end: 20061101
  2. NEXIUM [Suspect]
     Route: 048
     Dates: start: 20040413
  3. CLONIDINE [Concomitant]
     Dosage: DAILY
     Dates: start: 20100421
  4. DECONAMINE SR [Concomitant]
     Dosage: ONE BED TIME
     Dates: start: 20100421
  5. NEXIUM [Suspect]
     Route: 048
     Dates: start: 20050524
  6. LIPITOR [Concomitant]
  7. ZETIA [Concomitant]
     Dates: start: 20050524
  8. SIMVASTATIN [Concomitant]
     Indication: MEDICAL DIET
  9. KEFLEX [Concomitant]
     Dates: start: 20100421
  10. PHENERGAN HCL [Concomitant]
     Dosage: 10 MG BED TIME
     Dates: start: 20100421
  11. ACTOS [Concomitant]
     Dates: start: 20050524
  12. PROCARDIA XL [Concomitant]
  13. DIOVAN HCT [Concomitant]
  14. DIOVAN HCT [Concomitant]
     Dosage: 160/2.5
     Dates: start: 20050524
  15. ACTOS [Concomitant]
  16. MOBIC [Concomitant]
     Dosage: 15 MG PRN
     Dates: start: 20050524
  17. NEXIUM [Suspect]
     Indication: GASTROOESOPHAGEAL REFLUX DISEASE
     Dosage: DAILY
     Route: 048
  18. VICODON [Concomitant]
     Indication: PAIN
  19. VICODON [Concomitant]
     Dosage: PRN
     Dates: start: 20050524
  20. EXFORGE [Concomitant]
     Dosage: 10/160 DAILY
     Dates: start: 20100421
  21. LIPITOR [Concomitant]
     Dates: start: 20050524
  22. PEPTO-BISMOL  OTC [Concomitant]
     Dosage: AS NEEDED
  23. METFORMIN HYDROCHLORIDE [Concomitant]
     Indication: DIABETES MELLITUS
  24. AMLODIPINE [Concomitant]
     Indication: HYPERTENSION
  25. BUMEX [Concomitant]
  26. DEMADEX [Concomitant]
     Dosage: MWF
     Dates: end: 20050524
  27. LISINOPRIL [Concomitant]
     Indication: HYPERTENSION
  28. CRESTOR [Concomitant]
     Dates: start: 20100421
  29. METAGLIP [Concomitant]

REACTIONS (3)
  - HUMERUS FRACTURE [None]
  - FALL [None]
  - DEPRESSION [None]
